FAERS Safety Report 9412512 (Version 1)
Quarter: 2013Q3

REPORT INFORMATION
  Report Type: Spontaneous
  Country: JP (occurrence: None)
  Receive Date: 20130712
  Receipt Date: 20130712
  Transmission Date: 20140515
  Serious: Yes (Hospitalization, Other)
  Sender: FDA-Public Use
  Company Number: JP-2012-16538

PATIENT
  Age: 64 Year
  Sex: Male
  Weight: 61 kg

DRUGS (15)
  1. OPC-41061 [Suspect]
     Indication: CARDIAC FAILURE
     Route: 048
     Dates: start: 20120620, end: 20120626
  2. LASIX [Concomitant]
  3. LASIX [Concomitant]
  4. FLUITRAN [Concomitant]
  5. ARTIST [Concomitant]
  6. ANCARON [Concomitant]
  7. URSO [Concomitant]
  8. PARIET [Concomitant]
  9. THYRADIN [Concomitant]
  10. BLOPRESS [Concomitant]
  11. BLOPRESS [Concomitant]
  12. WARFARIN [Concomitant]
  13. MAGNESIUM OXIDE (MAGNESIUM OXIDE) [Concomitant]
  14. FEBURIC [Concomitant]
  15. THYRADIN S [Suspect]

REACTIONS (4)
  - Renal failure chronic [None]
  - Cardiac failure [None]
  - Ascites [None]
  - Decreased appetite [None]
